FAERS Safety Report 10214253 (Version 3)
Quarter: 2014Q2

REPORT INFORMATION
  Report Type: Spontaneous
  Country: US (occurrence: US)
  Receive Date: 20140603
  Receipt Date: 20140624
  Transmission Date: 20141212
  Serious: No
  Sender: FDA-Public Use
  Company Number: US-PFIZER INC-2014149190

PATIENT
  Age: 70 Year
  Sex: Male

DRUGS (12)
  1. SUTENT [Suspect]
     Indication: RENAL CANCER
     Dosage: 50 MG, UNK
     Dates: start: 20140120
  2. CYANOCOBALAMIN [Concomitant]
     Dosage: UNK
  3. LEVOTHYROXINE SODIUM [Concomitant]
     Dosage: UNK
  4. FEOSOL [Concomitant]
  5. PRAVASTATIN SODIUM [Concomitant]
     Dosage: UNK
  6. SYMBICORT [Concomitant]
     Dosage: UNK
  7. SPIRIVA HANDIHALER [Concomitant]
     Dosage: UNK
  8. PROPRANOLOL HCI [Concomitant]
     Dosage: UNK
  9. NEXIUM [Concomitant]
     Dosage: UNK
  10. ASPIRIN [Concomitant]
  11. MIRTAZAPINE [Concomitant]
  12. CALCIUM [Concomitant]

REACTIONS (3)
  - Disease progression [Unknown]
  - Renal cancer [Unknown]
  - Fatigue [Unknown]
